FAERS Safety Report 6045276-2 (Version None)
Quarter: 2009Q1

REPORT INFORMATION
  Report Type: 
  Country: None (occurrence: None)
  Receive Date: 20090121
  Receipt Date: 20090109
  Transmission Date: 20090719
  Serious: Yes (Other)
  Sender: FDA-Public Use
  Company Number: PHHY2009BR01147

PATIENT
  Sex: Female
  Weight: 61 kg

DRUGS (2)
  1. FORASEQ [Suspect]
     Indication: ASTHMA
     Dosage: 12/400 THREE TIMES DAILY
     Dates: start: 20081201
  2. FORASEQ [Suspect]
     Dosage: 12/400 TWICE DAILY

REACTIONS (2)
  - BLOOD PRESSURE INCREASED [None]
  - WEIGHT INCREASED [None]
